FAERS Safety Report 4454207-8 (Version None)
Quarter: 2004Q3

REPORT INFORMATION
  Report Type: 
  Country: None (occurrence: None)
  Receive Date: 20040826
  Receipt Date: 20040706
  Transmission Date: 20050211
  Serious: No
  Sender: FDA-Public Use
  Company Number: WAES 0407USA00455

PATIENT
  Age: 66 Year
  Sex: Male

DRUGS (5)
  1. ZETIA [Suspect]
     Indication: HYPERCHOLESTEROLAEMIA
     Dosage: 10 MG/DAILY/PO
     Route: 048
     Dates: start: 20040101
  2. CASODEX [Concomitant]
  3. LUPRON [Concomitant]
  4. ZOCOR [Concomitant]
  5. CHOLESTYRAMIEN RESIN [Concomitant]

REACTIONS (6)
  - ARRHYTHMIA [None]
  - EOSINOPHILIA [None]
  - HEART RATE DECREASED [None]
  - HYPOKALAEMIA [None]
  - HYPOTENSION [None]
  - LEUKOPENIA [None]
